FAERS Safety Report 8096774-1 (Version None)
Quarter: 2012Q1

REPORT INFORMATION
  Report Type: 
  Country: None (occurrence: None)
  Receive Date: 20120129
  Receipt Date: 20111103
  Transmission Date: 20120608
  Serious: Yes (Other)
  Sender: FDA-Public Use
  Company Number: US-ABBOTT-11P-163-0863087-00

PATIENT
  Sex: Female
  Weight: 68 kg

DRUGS (2)
  1. HUMIRA [Suspect]
     Indication: PSORIASIS
     Route: 058
     Dates: start: 20110922, end: 20110922
  2. HUMIRA [Suspect]
     Route: 058
     Dates: start: 20110929

REACTIONS (5)
  - RASH MACULO-PAPULAR [None]
  - URTICARIA [None]
  - RASH PRURITIC [None]
  - RASH ERYTHEMATOUS [None]
  - HYPERSENSITIVITY [None]
